FAERS Safety Report 19755131 (Version 1)
Quarter: 2021Q3

REPORT INFORMATION
  Report Type: Spontaneous
  Country: US (occurrence: US)
  Receive Date: 20210824
  Receipt Date: 20210824
  Transmission Date: 20211014
  Serious: Yes (Other)
  Sender: FDA-Public Use
  Company Number: None

PATIENT
  Age: 44 Year
  Sex: Female
  Weight: 73.35 kg

DRUGS (41)
  1. CERAVE DAILY MOISTURIZING LOTION [COSMETICS] [Suspect]
     Active Substance: COSMETICS
  2. PROGESTERONE. [Concomitant]
     Active Substance: PROGESTERONE
  3. GAMMA AMINO BUTYRIC ACID [Concomitant]
  4. TYLENOL [Concomitant]
     Active Substance: ACETAMINOPHEN
  5. SERTRALINE [Concomitant]
     Active Substance: SERTRALINE HYDROCHLORIDE
  6. L?TRYPTOPHAN [Concomitant]
     Active Substance: TRYPTOPHAN
  7. OPTUMUM NUTRITION BCAAS [Concomitant]
  8. VITAMIN B12 [Concomitant]
     Active Substance: CYANOCOBALAMIN
  9. VITAMIN D3 [Concomitant]
     Active Substance: CHOLECALCIFEROL
  10. VIT C ROSE HIPS [Concomitant]
  11. ARMOUR THYROID [Concomitant]
     Active Substance: THYROID, PORCINE
  12. ASHWAGHANDA [Concomitant]
  13. TURMERIC/CURCUMIN W GINGER POWDER [Concomitant]
  14. BENTYL [Concomitant]
     Active Substance: DICYCLOMINE HYDROCHLORIDE
  15. IODINE DROPS [Concomitant]
  16. IBUPROFEN/NAPROXEN [Concomitant]
     Active Substance: IBUPROFEN\NAPROXEN
  17. 5?HTP [Concomitant]
  18. MACA ROOT EXTRACT [Concomitant]
  19. MAGNESIUM OXIDE. [Concomitant]
     Active Substance: MAGNESIUM OXIDE
  20. MELATONIN [Concomitant]
     Active Substance: MELATONIN
  21. HYDROCORTISONE CREAM [Suspect]
     Active Substance: HYDROCORTISONE
  22. DIMETHICONE. [Concomitant]
     Active Substance: DIMETHICONE
  23. B?100S [Concomitant]
  24. MRM WHEY PROTEIN W COLLAGEN [Concomitant]
  25. ANCIENT NUTRITION MULTI?COLLAGEN PROTEIN [Concomitant]
  26. TRIAMCINOLONE ACETONIDE 1% [Suspect]
     Active Substance: TRIAMCINOLONE ACETONIDE
     Indication: RASH
     Dosage: ?          QUANTITY:1 SQUEEZE (PEA SIZE);OTHER FREQUENCY:UP TO 7X, 3X?4X;?
     Route: 061
     Dates: start: 20210818, end: 20210823
  27. CERAVE HYDRATING FACIAL CLEANSER [COSMETICS] [Suspect]
     Active Substance: COSMETICS
     Indication: THERAPEUTIC SKIN CARE TOPICAL
     Dosage: ?          OTHER STRENGTH:SQUEEZE;QUANTITY:1 UNSURE PEA?SIZE SQ;OTHER FREQUENCY:2X?3X DAILY;?
     Route: 061
  28. MIRALAX [Concomitant]
     Active Substance: POLYETHYLENE GLYCOL 3350
  29. LINZESS [Concomitant]
     Active Substance: LINACLOTIDE
  30. PROMETHAZINE [Concomitant]
     Active Substance: PROMETHAZINE HYDROCHLORIDE
  31. NIACIN. [Concomitant]
     Active Substance: NIACIN
  32. LEAKY GUT REVIVE [Concomitant]
  33. CALCIUM [Concomitant]
     Active Substance: CALCIUM
  34. MILK THISTLE [Concomitant]
     Active Substance: DIETARY SUPPLEMENT\HERBALS\MILK THISTLE
  35. CHLOROPHYLL EXTRACT [Concomitant]
  36. STEVIA [Concomitant]
  37. TRIAMCINOLONE ACETONIDE 1% [Suspect]
     Active Substance: TRIAMCINOLONE ACETONIDE
     Indication: HYPERSENSITIVITY
     Dosage: ?          QUANTITY:1 SQUEEZE (PEA SIZE);OTHER FREQUENCY:UP TO 7X, 3X?4X;?
     Route: 061
     Dates: start: 20210818, end: 20210823
  38. VOLTAREN [Concomitant]
     Active Substance: DICLOFENAC SODIUM
  39. LAMOTRIGINE. [Concomitant]
     Active Substance: LAMOTRIGINE
  40. GENERIC EXCEDRIN [Concomitant]
  41. MULTIVITAMIN [Concomitant]
     Active Substance: VITAMINS

REACTIONS (20)
  - Vision blurred [None]
  - Drug hypersensitivity [None]
  - Hallucination, visual [None]
  - Dyskinesia [None]
  - Diarrhoea [None]
  - Disturbance in attention [None]
  - Visual impairment [None]
  - Anxiety [None]
  - Mania [None]
  - Genital burning sensation [None]
  - Burning sensation [None]
  - Proctalgia [None]
  - Urinary tract pain [None]
  - Overdose [None]
  - Kidney infection [None]
  - Dysgeusia [None]
  - Nervousness [None]
  - Psychomotor hyperactivity [None]
  - Agitation [None]
  - Eye movement disorder [None]

NARRATIVE: CASE EVENT DATE: 20210823
